FAERS Safety Report 19823791 (Version 1)
Quarter: 2021Q3

REPORT INFORMATION
  Report Type: Spontaneous
  Country: US (occurrence: US)
  Receive Date: 20210914
  Receipt Date: 20210914
  Transmission Date: 20211014
  Serious: No
  Sender: FDA-Public Use
  Company Number: US-PERRIGO-21US010401

PATIENT
  Age: 60 Year
  Sex: Male
  Weight: 90.7 kg

DRUGS (7)
  1. CLOMIPHENE                         /00061301/ [Concomitant]
     Active Substance: CLOMIPHENE
     Indication: BLOOD TESTOSTERONE
     Dosage: UNKNOWN, UNKNOWN
     Route: 065
  2. TESTOSTERONE. [Suspect]
     Active Substance: TESTOSTERONE
     Dosage: ADDITIONAL PUMP, QD
     Route: 061
  3. LEVOTHYROXINE. [Concomitant]
     Active Substance: LEVOTHYROXINE
     Indication: HYPOTHYROIDISM
     Dosage: UNKNOWN, UNKNOWN
     Route: 065
  4. TESTOSTERONE. [Suspect]
     Active Substance: TESTOSTERONE
     Indication: BLOOD TESTOSTERONE ABNORMAL
     Dosage: 81 MG, QD
     Route: 061
  5. LOVATON [Concomitant]
     Indication: BLOOD CHOLESTEROL
     Dosage: UNKNOWN, UNKNOWN
     Route: 065
  6. FINASTERIDE. [Concomitant]
     Active Substance: FINASTERIDE
     Indication: PROSTATOMEGALY
     Dosage: UNKNOWN, UNKNOWN
     Route: 065
  7. ALFUZOSIN [Concomitant]
     Active Substance: ALFUZOSIN
     Indication: PROSTATOMEGALY
     Dosage: UNKNOWN, UNKNOWN
     Route: 065

REACTIONS (2)
  - Incorrect dose administered [Not Recovered/Not Resolved]
  - Product administered at inappropriate site [Not Recovered/Not Resolved]

NARRATIVE: CASE EVENT DATE: 20210727
